FAERS Safety Report 15756331 (Version 6)
Quarter: 2019Q4

REPORT INFORMATION
  Report Type: Spontaneous
  Country: CA (occurrence: CA)
  Receive Date: 20181224
  Receipt Date: 20191217
  Transmission Date: 20200122
  Serious: Yes (Other)
  Sender: FDA-Public Use
  Company Number: CA-PFIZER INC-2015044981

PATIENT
  Age: 56 Year
  Sex: Female

DRUGS (41)
  1. RITUXAN [Suspect]
     Active Substance: RITUXIMAB
     Indication: RHEUMATOID ARTHRITIS
     Dosage: 1 G, 1/2
     Route: 065
     Dates: start: 20120528
  2. FOLIC ACID. [Suspect]
     Active Substance: FOLIC ACID
     Dosage: 5 MILLIGRAM
     Route: 065
  3. METHOTREXATE SODIUM. [Suspect]
     Active Substance: METHOTREXATE SODIUM
     Dosage: 25 MILLIGRAM
     Route: 048
  4. ORENCIA [Suspect]
     Active Substance: ABATACEPT
     Indication: RHEUMATOID ARTHRITIS
     Dosage: 150 MG, QWK
     Route: 058
     Dates: start: 201405, end: 201501
  5. DESOXIMETASONE. [Suspect]
     Active Substance: DESOXIMETASONE
     Dosage: UNK
     Route: 058
  6. FOLIC ACID. [Suspect]
     Active Substance: FOLIC ACID
     Indication: RHEUMATOID ARTHRITIS
     Dosage: 500 MILLIGRAM
     Route: 065
  7. CETIRIZINE HYDROCHLORIDE. [Suspect]
     Active Substance: CETIRIZINE HYDROCHLORIDE
     Dosage: UNK
     Route: 065
  8. RITUXAN [Suspect]
     Active Substance: RITUXIMAB
     Dosage: 1 G, UNK
     Route: 042
  9. SIMPONI [Suspect]
     Active Substance: GOLIMUMAB
     Dosage: 50 MG, QMO
     Route: 058
  10. NAPROSYN [Suspect]
     Active Substance: NAPROXEN
     Dosage: 50 MILLIGRAM, UNK
     Route: 065
  11. CIMZIA [Suspect]
     Active Substance: CERTOLIZUMAB PEGOL
     Indication: RHEUMATOID ARTHRITIS
     Dosage: UNK
     Route: 058
  12. REACTINE [CETIRIZINE HYDROCHLORIDE] [Suspect]
     Active Substance: CETIRIZINE HYDROCHLORIDE
     Indication: RHEUMATOID ARTHRITIS
     Dosage: UNK
     Route: 065
  13. PREDNISONE. [Suspect]
     Active Substance: PREDNISONE
     Indication: RHEUMATOID ARTHRITIS
     Dosage: UNK
     Route: 065
  14. METHOTREXATE SODIUM. [Suspect]
     Active Substance: METHOTREXATE SODIUM
     Dosage: UNK, WEEKLY
     Route: 058
  15. XELJANZ [Suspect]
     Active Substance: TOFACITINIB CITRATE
     Dosage: 5 MILLIGRAM
     Route: 048
  16. SIMPONI [Suspect]
     Active Substance: GOLIMUMAB
     Indication: RHEUMATOID ARTHRITIS
     Dosage: 50 MG, Q4WK
     Route: 065
     Dates: start: 20130513, end: 201401
  17. FOSAMAX [Suspect]
     Active Substance: ALENDRONATE SODIUM
     Dosage: 40 MILLIGRAM
     Route: 058
  18. HUMIRA [Suspect]
     Active Substance: ADALIMUMAB
     Indication: RHEUMATOID ARTHRITIS
     Dosage: 40 MILLIGRAM
     Route: 058
  19. SULFASALAZINE. [Suspect]
     Active Substance: SULFASALAZINE
     Indication: RHEUMATOID ARTHRITIS
     Dosage: 500 MG, BID
     Route: 065
  20. XELJANZ [Suspect]
     Active Substance: TOFACITINIB CITRATE
     Indication: RHEUMATOID ARTHRITIS
     Dosage: 5 MILLIGRAM, QD
     Route: 048
     Dates: start: 20150217
  21. ORENCIA [Suspect]
     Active Substance: ABATACEPT
     Dosage: 150 G, UNK
     Route: 058
  22. ORENCIA [Suspect]
     Active Substance: ABATACEPT
     Dosage: UNK
     Route: 042
  23. ACTEMRA [Suspect]
     Active Substance: TOCILIZUMAB
     Indication: RHEUMATOID ARTHRITIS
     Dosage: UNK
     Route: 065
  24. APO-PREDNISONE [Suspect]
     Active Substance: PREDNISONE
     Indication: RHEUMATOID ARTHRITIS
     Dosage: 5 MILLIGRAM
     Route: 065
  25. ARAVA [Suspect]
     Active Substance: LEFLUNOMIDE
     Indication: RHEUMATOID ARTHRITIS
     Dosage: UNK
     Route: 048
  26. FOLIC ACID. [Suspect]
     Active Substance: FOLIC ACID
     Dosage: 50 MILLIGRAM
     Route: 065
  27. FOSAMAX [Suspect]
     Active Substance: ALENDRONATE SODIUM
     Indication: RHEUMATOID ARTHRITIS
     Dosage: UNK
     Route: 065
  28. CETIRIZINE [Suspect]
     Active Substance: CETIRIZINE HYDROCHLORIDE
     Indication: RHEUMATOID ARTHRITIS
     Dosage: UNK
     Route: 065
  29. ENBREL [Suspect]
     Active Substance: ETANERCEPT
     Indication: RHEUMATOID ARTHRITIS
     Dosage: 50 MG, WEEKLY
     Route: 058
     Dates: start: 20110722, end: 201111
  30. CELEBREX [Suspect]
     Active Substance: CELECOXIB
     Indication: RHEUMATOID ARTHRITIS
     Dosage: 200 MG, UNK
     Dates: start: 200909
  31. XELJANZ [Suspect]
     Active Substance: TOFACITINIB CITRATE
     Dosage: 5 MG, 2X/DAY
     Route: 048
     Dates: start: 20150428
  32. HYDROXYCHLOROQUINE SULFATE. [Suspect]
     Active Substance: HYDROXYCHLOROQUINE SULFATE
     Indication: RHEUMATOID ARTHRITIS
     Dosage: 400 MG, QD
     Route: 048
     Dates: start: 200912
  33. RITUXIMAB. [Suspect]
     Active Substance: RITUXIMAB
     Indication: RHEUMATOID ARTHRITIS
     Dosage: UNK
     Route: 042
  34. NAPROSYN [Suspect]
     Active Substance: NAPROXEN
     Indication: RHEUMATOID ARTHRITIS
     Dosage: 500 MILLIGRAM, BID
     Route: 065
  35. REMICADE [Suspect]
     Active Substance: INFLIXIMAB
     Indication: RHEUMATOID ARTHRITIS
     Dosage: UNK
     Route: 042
  36. SULFASALAZINE. [Suspect]
     Active Substance: SULFASALAZINE
     Dosage: 1 GRAM, BID
     Route: 065
  37. ORENCIA [Suspect]
     Active Substance: ABATACEPT
     Dosage: 150 MG, QMO
     Route: 058
  38. DESOXIMETASONE. [Suspect]
     Active Substance: DESOXIMETASONE
     Indication: RHEUMATOID ARTHRITIS
     Dosage: UNK
     Route: 048
  39. PHTHALYLSULFATHIAZOLE [Suspect]
     Active Substance: PHTHALYLSULFATHIAZOLE
     Indication: RHEUMATOID ARTHRITIS
     Dosage: UNK
     Route: 065
  40. METHOTREXATE SODIUM. [Suspect]
     Active Substance: METHOTREXATE SODIUM
     Indication: RHEUMATOID ARTHRITIS
     Dosage: 20 MG, WEEKLY
     Route: 058
     Dates: start: 200912
  41. METHOTREXATE SODIUM. [Suspect]
     Active Substance: METHOTREXATE SODIUM
     Dosage: 25 MG, WEEKLY
     Route: 058
     Dates: end: 20140702

REACTIONS (24)
  - Dizziness [Recovered/Resolved]
  - Synovitis [Recovered/Resolved]
  - Abdominal discomfort [Not Recovered/Not Resolved]
  - Alopecia [Not Recovered/Not Resolved]
  - Fatigue [Not Recovered/Not Resolved]
  - Arthropathy [Not Recovered/Not Resolved]
  - Vomiting [Recovered/Resolved]
  - Swelling [Not Recovered/Not Resolved]
  - Oedema [Recovered/Resolved]
  - Fibromyalgia [Recovered/Resolved]
  - Condition aggravated [Not Recovered/Not Resolved]
  - Systemic lupus erythematosus [Not Recovered/Not Resolved]
  - Glossodynia [Not Recovered/Not Resolved]
  - Nausea [Recovered/Resolved]
  - Diarrhoea [Recovered/Resolved]
  - Rheumatoid arthritis [Recovered/Resolved]
  - Contraindicated product administered [Recovered/Resolved]
  - Pemphigus [Not Recovered/Not Resolved]
  - Off label use [Not Recovered/Not Resolved]
  - Hand deformity [Not Recovered/Not Resolved]
  - Pain [Not Recovered/Not Resolved]
  - Drug intolerance [Not Recovered/Not Resolved]
  - Abdominal pain [Recovered/Resolved]
  - Drug ineffective [Not Recovered/Not Resolved]

NARRATIVE: CASE EVENT DATE: 2015
